FAERS Safety Report 16649195 (Version 1)
Quarter: 2019Q3

REPORT INFORMATION
  Report Type: Spontaneous
  Country: ES (occurrence: ES)
  Receive Date: 20190730
  Receipt Date: 20190730
  Transmission Date: 20191004
  Serious: Yes (Hospitalization)
  Sender: FDA-Public Use
  Company Number: ES-NOVOPROD-675644

PATIENT
  Age: 32 Year
  Sex: Female
  Weight: 69 kg

DRUGS (1)
  1. NOVORAPID [Suspect]
     Active Substance: INSULIN ASPART
     Indication: DIABETES MELLITUS
     Dosage: UNK
     Route: 058

REACTIONS (1)
  - Diabetic ketosis [Unknown]

NARRATIVE: CASE EVENT DATE: 20190719
